FAERS Safety Report 6572260-2 (Version None)
Quarter: 2010Q1

REPORT INFORMATION
  Report Type: 
  Country: None (occurrence: None)
  Receive Date: 20100205
  Receipt Date: 20100125
  Transmission Date: 20100710
  Serious: Yes (Other)
  Sender: FDA-Public Use
  Company Number: US-JNJFOC-20100108582

PATIENT
  Sex: Male
  Weight: 74.84 kg

DRUGS (18)
  1. REMICADE [Suspect]
     Indication: SKIN DISORDER
     Route: 042
  2. REMICADE [Suspect]
     Route: 042
  3. REMICADE [Suspect]
     Route: 042
  4. REMICADE [Suspect]
     Route: 042
  5. REMICADE [Suspect]
     Indication: COLITIS ULCERATIVE
     Route: 042
  6. REMICADE [Suspect]
     Route: 042
  7. REMICADE [Suspect]
     Route: 042
  8. REMICADE [Suspect]
     Route: 042
  9. REMICADE [Suspect]
     Indication: CROHN'S DISEASE
     Route: 042
  10. REMICADE [Suspect]
     Route: 042
  11. REMICADE [Suspect]
     Route: 042
  12. REMICADE [Suspect]
     Route: 042
  13. FOSAMAX [Concomitant]
     Indication: OSTEOPOROSIS
  14. SULFASALAZIN [Concomitant]
     Indication: CROHN'S DISEASE
  15. SULFASALAZIN [Concomitant]
     Indication: COLITIS ULCERATIVE
  16. PENTASA [Concomitant]
     Indication: CROHN'S DISEASE
  17. PENTASA [Concomitant]
     Indication: COLITIS ULCERATIVE
  18. NORVASC [Concomitant]
     Indication: BLOOD PRESSURE

REACTIONS (8)
  - ARTHRALGIA [None]
  - CHILLS [None]
  - GASTROENTERITIS VIRAL [None]
  - INFECTION [None]
  - JOINT SWELLING [None]
  - OEDEMA PERIPHERAL [None]
  - SKIN DISORDER [None]
  - URTICARIA [None]
